FAERS Safety Report 24823555 (Version 1)
Quarter: 2025Q1

REPORT INFORMATION
  Report Type: Spontaneous
  Country: TW (occurrence: TW)
  Receive Date: 20250109
  Receipt Date: 20250109
  Transmission Date: 20250408
  Serious: No
  Sender: ALKEM
  Company Number: TW-ALKEM LABORATORIES LIMITED-TW-ALKEM-2024-18663

PATIENT
  Age: 38 Year
  Sex: Male

DRUGS (7)
  1. METHADONE HYDROCHLORIDE [Suspect]
     Active Substance: METHADONE HYDROCHLORIDE
     Indication: Product used for unknown indication
     Route: 065
  2. FLUNITRAZEPAM [Suspect]
     Active Substance: FLUNITRAZEPAM
     Indication: Psychotic disorder
     Route: 065
  3. FLUNITRAZEPAM [Suspect]
     Active Substance: FLUNITRAZEPAM
     Indication: Hallucination
  4. THIORIDAZINE [Suspect]
     Active Substance: THIORIDAZINE
     Indication: Psychotic disorder
     Route: 065
  5. THIORIDAZINE [Suspect]
     Active Substance: THIORIDAZINE
     Indication: Hallucination
  6. TRIHEXYPHENIDYL [Suspect]
     Active Substance: TRIHEXYPHENIDYL
     Indication: Psychotic disorder
     Route: 065
  7. TRIHEXYPHENIDYL [Suspect]
     Active Substance: TRIHEXYPHENIDYL
     Indication: Hallucination

REACTIONS (3)
  - Hyperventilation [Unknown]
  - Drug interaction [Unknown]
  - Anxiety [Unknown]
